FAERS Safety Report 8770686 (Version 1)
Quarter: 2012Q4

REPORT INFORMATION
  Report Type: 
  Country: US (occurrence: US)
  Receive Date: 20120907
  Receipt Date: 20120907
  Transmission Date: 20130627
  Serious: Yes (Other)
  Sender: FDA-Public Use
  Company Number: PHHY2009US071215

PATIENT

DRUGS (1)
  1. CICLOSPORIN [Suspect]
     Indication: EYE INFLAMMATION

REACTIONS (1)
  - Bone marrow failure [Unknown]
